FAERS Safety Report 9852437 (Version 1)
Quarter: 2014Q1

REPORT INFORMATION
  Report Type: Spontaneous
  Country: US (occurrence: US)
  Receive Date: 20140129
  Receipt Date: 20140129
  Transmission Date: 20141002
  Serious: No
  Sender: FDA-Public Use
  Company Number: US-BAYER-2014-015012

PATIENT
  Age: 64 Year
  Sex: Male

DRUGS (1)
  1. GADAVIST [Suspect]
     Dosage: 7.5 ML, ONCE
     Route: 042
     Dates: start: 20140127, end: 20140127

REACTIONS (2)
  - Nausea [Recovering/Resolving]
  - Vomiting [Recovering/Resolving]
